FAERS Safety Report 7442896-5 (Version None)
Quarter: 2011Q2

REPORT INFORMATION
  Report Type: 
  Country: None (occurrence: None)
  Receive Date: 20110428
  Receipt Date: 20110419
  Transmission Date: 20111010
  Serious: Yes (Hospitalization, Other)
  Sender: FDA-Public Use
  Company Number: US-ASTRAZENECA-2011SE22503

PATIENT
  Age: 58 Year
  Sex: Female
  Weight: 98.9 kg

DRUGS (13)
  1. SEROQUEL [Suspect]
     Indication: BIPOLAR DISORDER
     Route: 048
  2. DEPAKOTE [Concomitant]
  3. VESICARE [Concomitant]
  4. SINEMET [Concomitant]
  5. NUERONTIN [Concomitant]
  6. SEROQUEL [Suspect]
     Indication: SLEEP DISORDER
     Route: 048
  7. REQUIP [Concomitant]
  8. PRIMIDONE [Concomitant]
  9. LEVOTHYROXINE SODIUM [Concomitant]
  10. LEXAPRO [Concomitant]
  11. FAMOTIDINE [Concomitant]
  12. PRAVASTATIN [Concomitant]
  13. HUMALOG [Concomitant]

REACTIONS (17)
  - DIARRHOEA [None]
  - PARKINSON'S DISEASE [None]
  - FATIGUE [None]
  - CHOLECYSTECTOMY [None]
  - INTESTINAL FUNCTIONAL DISORDER [None]
  - HYPERCHOLESTEROLAEMIA [None]
  - RENAL FAILURE [None]
  - BLADDER DISORDER [None]
  - CHOLELITHIASIS [None]
  - DEHYDRATION [None]
  - TOXICITY TO VARIOUS AGENTS [None]
  - DIABETES MELLITUS [None]
  - RESTLESS LEGS SYNDROME [None]
  - HYSTERECTOMY [None]
  - GOITRE [None]
  - WEIGHT DECREASED [None]
  - SOMNOLENCE [None]
